FAERS Safety Report 17425032 (Version 1)
Quarter: 2020Q1

REPORT INFORMATION
  Report Type: Spontaneous
  Country: US (occurrence: US)
  Receive Date: 20200217
  Receipt Date: 20200217
  Transmission Date: 20200409
  Serious: No
  Sender: FDA-Public Use
  Company Number: US-CIPLA LTD.-2019US03925

PATIENT

DRUGS (2)
  1. ALFUZOSIN [Suspect]
     Active Substance: ALFUZOSIN
     Indication: NOCTURIA
     Dosage: 1 DOSAGE FORM, QD (1 TABLET IN THE EVENING), FIRST AND THIRD BOTTLE
     Route: 048
     Dates: start: 2019
  2. ALFUZOSIN [Suspect]
     Active Substance: ALFUZOSIN
     Dosage: 1 DOSAGE FORM, QD (1 TABLET IN THE EVENING), SECOND BOTTLE
     Route: 048

REACTIONS (4)
  - Urine output increased [Recovered/Resolved]
  - Product quality issue [Unknown]
  - Insomnia [Recovered/Resolved]
  - Drug ineffective [Unknown]

NARRATIVE: CASE EVENT DATE: 201904
